FAERS Safety Report 8356285-2 (Version None)
Quarter: 2012Q2

REPORT INFORMATION
  Report Type: 
  Country: None (occurrence: None)
  Receive Date: 20120514
  Receipt Date: 20120509
  Transmission Date: 20120825
  Serious: Yes (Other)
  Sender: FDA-Public Use
  Company Number: US-PFIZER INC-2012113675

PATIENT
  Sex: Male
  Weight: 77.098 kg

DRUGS (7)
  1. CLONAZEPAM [Concomitant]
     Indication: ANXIETY
     Dosage: 1 MG, 3X/DAY
  2. CLONAZEPAM [Concomitant]
     Indication: PANIC ATTACK
  3. CLONAZEPAM [Concomitant]
     Indication: CONVULSION PROPHYLAXIS
  4. WELLBUTRIN [Concomitant]
     Indication: DEPRESSION
     Dosage: 75 MG, 3X/DAY
  5. LYRICA [Suspect]
     Dosage: 200 MG, 3X/DAY
  6. LYRICA [Suspect]
     Indication: CONVULSION
     Dosage: 700 MG, DAILY
  7. LYRICA [Suspect]
     Indication: INTERCOSTAL NEURALGIA
     Dosage: 200 MG, 3X/DAY

REACTIONS (3)
  - EPILEPTIC AURA [None]
  - PANIC ATTACK [None]
  - STRESS [None]
